FAERS Safety Report 9215922 (Version 2)
Quarter: 2013Q3

REPORT INFORMATION
  Report Type: Spontaneous
  Country: US (occurrence: US)
  Receive Date: 20130408
  Receipt Date: 20130806
  Transmission Date: 20140515
  Serious: No
  Sender: FDA-Public Use
  Company Number: US-009507513-2012SP023947

PATIENT
  Age: 56 Year
  Sex: Female
  Weight: 108 kg

DRUGS (1)
  1. DULERA [Suspect]
     Indication: ASTHMA
     Dosage: UNK
     Dates: start: 20120101

REACTIONS (1)
  - Contraindication to medical treatment [Unknown]
